FAERS Safety Report 8089413-7 (Version None)
Quarter: 2012Q1

REPORT INFORMATION
  Report Type: 
  Country: None (occurrence: None)
  Receive Date: 20120128
  Receipt Date: 20110616
  Transmission Date: 20120608
  Serious: Yes (Hospitalization)
  Sender: FDA-Public Use
  Company Number: US-ABBOTT-11P-163-0723302-00

PATIENT
  Sex: Female

DRUGS (2)
  1. HUMIRA [Suspect]
     Indication: RHEUMATOID ARTHRITIS
     Dates: start: 20031001, end: 20100908
  2. HUMIRA [Suspect]
     Dates: start: 20110401

REACTIONS (3)
  - APPENDICITIS PERFORATED [None]
  - ARTHRITIS [None]
  - SEPSIS [None]
